FAERS Safety Report 25575550 (Version 1)
Quarter: 2025Q3

REPORT INFORMATION
  Report Type: Spontaneous
  Country: US (occurrence: US)
  Receive Date: 20250718
  Receipt Date: 20250718
  Transmission Date: 20251021
  Serious: Yes (Other)
  Sender: SPECGX
  Company Number: US-SPECGX-T202501218

PATIENT
  Age: 49 Year
  Sex: Male

DRUGS (3)
  1. ANAFRANIL [Suspect]
     Active Substance: CLOMIPRAMINE HYDROCHLORIDE
     Indication: Antipsychotic therapy
     Route: 065
  2. ARIPIPRAZOLE [Suspect]
     Active Substance: ARIPIPRAZOLE
     Indication: Antipsychotic therapy
     Route: 065
  3. VENLAFAXINE [Suspect]
     Active Substance: VENLAFAXINE HYDROCHLORIDE
     Indication: Antipsychotic therapy
     Route: 065

REACTIONS (7)
  - Megacolon [Unknown]
  - Colectomy [Unknown]
  - Ileostomy [Unknown]
  - Endotracheal intubation [Unknown]
  - Gastrointestinal tube insertion [Unknown]
  - Laparotomy [Unknown]
  - Constipation [Unknown]
